FAERS Safety Report 18338768 (Version 1)
Quarter: 2020Q4

REPORT INFORMATION
  Report Type: Spontaneous
  Country: US (occurrence: US)
  Receive Date: 20201002
  Receipt Date: 20201002
  Transmission Date: 20210113
  Serious: Yes (Hospitalization, Other)
  Sender: FDA-Public Use
  Company Number: US-PFIZER INC-2020199584

PATIENT
  Age: 39 Year
  Sex: Female

DRUGS (3)
  1. XELJANZ [Suspect]
     Active Substance: TOFACITINIB CITRATE
     Indication: HEREDITARY DISORDER
  2. XELJANZ [Suspect]
     Active Substance: TOFACITINIB CITRATE
     Indication: MAST CELL ACTIVATION SYNDROME
     Dosage: 5 MG, 2X/DAY
     Route: 048
     Dates: start: 201902
  3. CROMOLYN SODIUM. [Concomitant]
     Active Substance: CROMOLYN SODIUM
     Dosage: UNK (20 MG/ML ORAL CONC)
     Route: 048

REACTIONS (3)
  - Pelvic congestion [Unknown]
  - Product use in unapproved indication [Unknown]
  - Off label use [Unknown]

NARRATIVE: CASE EVENT DATE: 201902
